FAERS Safety Report 8164558-1 (Version None)
Quarter: 2012Q1

REPORT INFORMATION
  Report Type: 
  Country: None (occurrence: None)
  Receive Date: 20120226
  Receipt Date: 20120216
  Transmission Date: 20120608
  Serious: Yes (Hospitalization)
  Sender: FDA-Public Use
  Company Number: AT-BRISTOL-MYERS SQUIBB COMPANY-16364432

PATIENT
  Age: 64 Year
  Sex: Female
  Weight: 75 kg

DRUGS (21)
  1. ORENCIA [Suspect]
     Indication: POLYARTHRITIS
     Dosage: LAST DOSE ON 02FEB12
     Route: 042
     Dates: start: 20111129, end: 20120202
  2. ORENCIA [Suspect]
     Indication: RHEUMATOID ARTHRITIS
     Dosage: LAST DOSE ON 02FEB12
     Route: 042
     Dates: start: 20111129, end: 20120202
  3. METHOTREXATE [Suspect]
  4. BISOPROLOL FUMARATE [Suspect]
     Indication: TACHYCARDIA
     Dosage: 1 DF : 5MG,1/2
  5. BISOPROLOL FUMARATE [Suspect]
     Indication: ATRIAL FIBRILLATION
     Dosage: 1 DF : 5MG,1/2
  6. FLUTICASONE PROPIONATE/SALMETEROL [Suspect]
     Dosage: SERETIDE DISKUS,TAB
     Route: 055
  7. VERAPAMIL [Concomitant]
     Indication: TACHYCARDIA
     Dosage: 1 DF : 125 120MG,VERAPABENE
  8. VERAPAMIL [Concomitant]
     Indication: ATRIAL FIBRILLATION
     Dosage: 1 DF : 125 120MG,VERAPABENE
  9. HALCION [Concomitant]
     Dosage: 1/2
  10. CALCIUM [Concomitant]
     Indication: OSTEOPENIA
     Dosage: CAL D VITA + OLEOVIL
  11. VITAMIN D [Concomitant]
     Indication: OSTEOPENIA
     Dosage: CAL D VITA + OLEOVIL
  12. VERACAPT [Suspect]
  13. MARCOUMAR [Suspect]
     Indication: ATRIAL FIBRILLATION
  14. PANTOPRAZOLE SODIUM [Suspect]
     Dosage: ONE DOSAGE FORM PER DAY
  15. CALCIUM CARBONATE + CHOLECALCIFEROL [Suspect]
  16. METHOTREXATE [Concomitant]
     Indication: RHEUMATOID ARTHRITIS
  17. PREDNISOLONE [Suspect]
     Indication: RHEUMATOID ARTHRITIS
     Dosage: 5MG BID
  18. SPIRIVA [Suspect]
     Dosage: 18MG CAPSULES
     Route: 055
  19. ACETYLCYSTEINE [Suspect]
  20. FOLSAN [Suspect]
     Route: 048
  21. VITAMIN D [Concomitant]
     Indication: OSTEOPENIA
     Dosage: CAL D VITA + OLEOVIL

REACTIONS (2)
  - WEIGHT INCREASED [None]
  - HAEMATOMA [None]
